FAERS Safety Report 22653254 (Version 1)
Quarter: 2023Q2

REPORT INFORMATION
  Report Type: Other
  Country: US (occurrence: None)
  Receive Date: 20230629
  Receipt Date: 20230629
  Transmission Date: 20230722
  Serious: Yes (Hospitalization)
  Sender: FDA-Public Use
  Company Number: US-ROCHE-3377919

PATIENT
  Age: 64 Year
  Sex: Female
  Weight: 56.6 kg

DRUGS (6)
  1. BEVACIZUMAB [Suspect]
     Active Substance: BEVACIZUMAB
     Indication: Invasive breast carcinoma
     Dosage: OVER 30-90 MIN ON DAY 1, TOTAL DRUG ADMINISTERED : 566 MG. ON 10/SEP/2008, RECEIVED MOST RECENT DOSE
     Route: 042
  2. CYCLOPHOSPHAMIDE [Suspect]
     Active Substance: CYCLOPHOSPHAMIDE
     Indication: Invasive breast carcinoma
     Dosage: OVER 20-30 MIN ON DAY 1, TOTAL DRUG ADMINISTERED : 924 MG. ON 10/SEP/2008, RECEIVED MOST RECENT DOS
     Route: 042
  3. DOXORUBICIN HYDROCHLORIDE [Suspect]
     Active Substance: DOXORUBICIN HYDROCHLORIDE
     Indication: Invasive breast carcinoma
     Dosage: ON DAY 1. TOTAL DRUG ADMINISTERED : 92 MG. ON 10/SEP/2008, RECEIVED MOST RECENT DOSE OF DOXORUBICIN
     Route: 042
  4. PEGFILGRASTIM [Suspect]
     Active Substance: PEGFILGRASTIM
     Indication: Invasive breast carcinoma
     Dosage: ON DAY 2, TOTAL DRUG ADMINISTERED : 6 MG. ON 11/SEP/2008, RECEIVED MOST RECENT DOSE OF PEGFILGRASTIM
     Route: 058
  5. REMERON [Concomitant]
     Active Substance: MIRTAZAPINE
     Indication: Anxiety
  6. ATIVAN [Concomitant]
     Active Substance: LORAZEPAM
     Indication: Anxiety

REACTIONS (1)
  - Cognitive disorder [Recovering/Resolving]

NARRATIVE: CASE EVENT DATE: 20080916
